FAERS Safety Report 10448709 (Version 3)
Quarter: 2014Q4

REPORT INFORMATION
  Report Type: Spontaneous
  Country: DE (occurrence: DE)
  Receive Date: 20140912
  Receipt Date: 20141029
  Transmission Date: 20150528
  Serious: Yes (Death, Life-Threatening, Other)
  Sender: FDA-Public Use
  Company Number: DE-ROCHE-1437399

PATIENT
  Age: 67 Year
  Sex: Male
  Weight: 77 kg

DRUGS (8)
  1. RITUXIMAB [Suspect]
     Active Substance: RITUXIMAB
     Dosage: 2 ADMINISTRATIONS
     Route: 042
     Dates: start: 201308
  2. RITUXIMAB [Suspect]
     Active Substance: RITUXIMAB
     Route: 042
     Dates: start: 20110117
  3. RITUXIMAB [Suspect]
     Active Substance: RITUXIMAB
     Route: 042
     Dates: start: 201403
  4. RITUXIMAB [Suspect]
     Active Substance: RITUXIMAB
     Route: 042
     Dates: start: 20100428
  5. RITUXIMAB [Suspect]
     Active Substance: RITUXIMAB
     Route: 042
     Dates: start: 20110131
  6. RITUXIMAB [Suspect]
     Active Substance: RITUXIMAB
     Route: 042
     Dates: start: 201402
  7. PREDNISOLON [Concomitant]
     Active Substance: PREDNISOLONE
     Indication: GRANULOMATOSIS WITH POLYANGIITIS
     Route: 048
     Dates: start: 200910
  8. RITUXIMAB [Suspect]
     Active Substance: RITUXIMAB
     Indication: GRANULOMATOSIS WITH POLYANGIITIS
     Dosage: 6 ADMINISTRATIONS IN TOTAL
     Route: 042
     Dates: start: 20100409, end: 20140303

REACTIONS (5)
  - Hepatorenal syndrome [Fatal]
  - Hepatic cirrhosis [Fatal]
  - Hepatitis fulminant [Fatal]
  - Hepatic failure [Fatal]
  - Hepatitis B [Fatal]

NARRATIVE: CASE EVENT DATE: 20140613
